FAERS Safety Report 8352632-6 (Version None)
Quarter: 2012Q2

REPORT INFORMATION
  Report Type: 
  Country: None (occurrence: None)
  Receive Date: 20120511
  Receipt Date: 20120504
  Transmission Date: 20120825
  Serious: Yes (Other)
  Sender: FDA-Public Use
  Company Number: DE-UCBSA-052496

PATIENT
  Age: 39 Year
  Sex: Female
  Weight: 71 kg

DRUGS (9)
  1. DIAZEPAM [Concomitant]
  2. PREDNISOLONE [Concomitant]
  3. IBUPROFEN [Concomitant]
  4. MORPHINE SULFATE [Concomitant]
  5. CIMZIA [Suspect]
     Indication: RHEUMATOID ARTHRITIS
     Route: 058
     Dates: start: 20110919, end: 20120201
  6. OMEPRAZOLE [Concomitant]
  7. OTRIVIN [Concomitant]
     Dosage: UNSPECIFIED DOSE AS NEEDED
  8. PREDNISONE [Concomitant]
     Dates: start: 20120101
  9. METOCLOPRAMIDE [Concomitant]

REACTIONS (3)
  - ABORTION SPONTANEOUS [None]
  - PREGNANCY ON ORAL CONTRACEPTIVE [None]
  - PREGNANCY [None]
